FAERS Safety Report 5056135-6 (Version None)
Quarter: 2006Q3

REPORT INFORMATION
  Report Type: 
  Country: None (occurrence: None)
  Receive Date: 20060720
  Receipt Date: 20060719
  Transmission Date: 20061208
  Serious: Yes (Congenital Anomaly, Other)
  Sender: FDA-Public Use
  Company Number: US-GLAXOSMITHKLINE-A0612838A

PATIENT
  Sex: Male
  Weight: 3.3 kg

DRUGS (3)
  1. LAMICTAL [Suspect]
     Indication: EPILEPSY
     Dosage: 300MG UNKNOWN
     Route: 065
  2. DILANTIN [Concomitant]
     Indication: EPILEPSY
     Dosage: 200MG UNKNOWN
     Route: 065
  3. TOPAMAX [Concomitant]
     Indication: EPILEPSY
     Route: 065
     Dates: end: 20060201

REACTIONS (2)
  - DRUG EXPOSURE DURING PREGNANCY [None]
  - SPINA BIFIDA [None]
